FAERS Safety Report 4819452-8 (Version None)
Quarter: 2005Q4

REPORT INFORMATION
  Report Type: 
  Country: None (occurrence: None)
  Receive Date: 20051031
  Receipt Date: 20050718
  Transmission Date: 20060501
  Serious: No
  Sender: FDA-Public Use
  Company Number: 2005PV000438

PATIENT
  Age: 61 Year
  Sex: Female
  Weight: 54.4316 kg

DRUGS (8)
  1. SYMLIN [Suspect]
     Indication: DIABETES MELLITUS NON-INSULIN-DEPENDENT
     Dosage: 30 MCG;QD;SC
     Route: 058
     Dates: start: 20050712
  2. HUMALOG [Concomitant]
  3. LEVIL [Concomitant]
  4. CRESTOR [Concomitant]
  5. PLAVIX [Concomitant]
  6. FOLIC ACID [Concomitant]
  7. STRATTERA [Concomitant]
  8. LEXAPRO [Concomitant]

REACTIONS (3)
  - HYPERGLYCAEMIA [None]
  - HYPOGLYCAEMIA [None]
  - NAUSEA [None]
